FAERS Safety Report 6753786-5 (Version None)
Quarter: 2010Q2

REPORT INFORMATION
  Report Type: 
  Country: None (occurrence: None)
  Receive Date: 20100601
  Receipt Date: 20100517
  Transmission Date: 20101027
  Serious: Yes (Death)
  Sender: FDA-Public Use
  Company Number: 2010062331

PATIENT
  Sex: Female
  Weight: 80 kg

DRUGS (14)
  1. DALTEPARIN SODIUM [Suspect]
     Indication: PULMONARY EMBOLISM
     Dosage: 16000 IU, 1X/DAY, SUBCUTANEOUS, 12500 IU 1X/DAY, SUBCUTANEOUS
     Route: 058
     Dates: start: 20100225, end: 20100325
  2. DALTEPARIN SODIUM [Suspect]
     Indication: PULMONARY EMBOLISM
     Dosage: 16000 IU, 1X/DAY, SUBCUTANEOUS, 12500 IU 1X/DAY, SUBCUTANEOUS
     Route: 058
     Dates: start: 20100326
  3. RAMIPRIL [Concomitant]
  4. LOPRESSOR [Concomitant]
  5. NORVASC [Concomitant]
  6. ASPIRIN [Concomitant]
  7. CRESTOR [Concomitant]
  8. LYRICA [Concomitant]
  9. HYDROMORPHONE HCL [Concomitant]
  10. HALDOL [Concomitant]
  11. COLACE (DOCUSATE SODIUM) [Concomitant]
  12. SENOKOT [Concomitant]
  13. RITALIN [Concomitant]
  14. KETAMINE HCL [Concomitant]

REACTIONS (1)
  - HOSPITALISATION [None]
